FAERS Safety Report 7644674-0 (Version None)
Quarter: 2011Q3

REPORT INFORMATION
  Report Type: 
  Country: None (occurrence: None)
  Receive Date: 20110729
  Receipt Date: 20110720
  Transmission Date: 20111222
  Serious: Yes (Hospitalization, Other)
  Sender: FDA-Public Use
  Company Number: US-ASTRAZENECA-2011SE43740

PATIENT
  Age: 44 Year
  Sex: Female

DRUGS (12)
  1. TRIDESILON [Concomitant]
     Indication: EYELID DISORDER
     Dosage: TWICE DAILY
  2. LIDEX [Concomitant]
     Indication: SKIN REACTION
     Dosage: TWICE DAILY
  3. VENTOLIN HFA [Concomitant]
     Indication: COUGH
     Dosage: 2 PUFFS EVERY 4-6 HOURS AS NEEDED
     Route: 055
  4. VENTOLIN HFA [Concomitant]
     Indication: WHEEZING
     Dosage: 2 PUFFS EVERY 4-6 HOURS AS NEEDED
     Route: 055
  5. SYMBICORT [Suspect]
     Dosage: 160/4.5 MCG, TWO PUFFS TWO TIMES DAILY
     Route: 055
  6. NEXIUM [Concomitant]
     Route: 048
  7. EPIPEN [Concomitant]
     Dosage: 0.3 MG/0.3 ML (1: 1000)
     Route: 030
  8. BACTROBAN [Concomitant]
     Indication: SKIN LESION
     Dosage: TWICE DAILY
  9. XOLAIR [Concomitant]
     Route: 058
  10. ALPRAZOLAM [Concomitant]
     Dosage: 0.5 MG, HALF TABLET DAILY
     Route: 048
  11. PROTOPIC [Concomitant]
     Indication: RASH
  12. ZYRTEC [Concomitant]
     Route: 048

REACTIONS (11)
  - SKIN LESION [None]
  - INFECTIVE EXACERBATION OF CHRONIC OBSTRUCTIVE AIRWAYS DISEASE [None]
  - URTICARIA [None]
  - DYSPEPSIA [None]
  - COUGH [None]
  - TOBACCO ABUSE [None]
  - GASTROOESOPHAGEAL REFLUX DISEASE [None]
  - RHINITIS [None]
  - WHEEZING [None]
  - HERNIA [None]
  - HERNIA REPAIR [None]
